FAERS Safety Report 4354595-7 (Version None)
Quarter: 2004Q2

REPORT INFORMATION
  Report Type: 
  Country: None (occurrence: None)
  Receive Date: 20040503
  Receipt Date: 20040422
  Transmission Date: 20050107
  Serious: Yes (Death, Hospitalization)
  Sender: FDA-Public Use
  Company Number: US-JNJFOC-20040405647

PATIENT
  Age: 75 Year
  Sex: Male

DRUGS (2)
  1. LEVAQUIN [Suspect]
     Indication: SEPSIS
     Dates: start: 20040103, end: 20040123
  2. FLUCONAZOLE [Concomitant]

REACTIONS (4)
  - ACUTE RESPIRATORY DISTRESS SYNDROME [None]
  - INTERSTITIAL LUNG DISEASE [None]
  - MEDICAL DEVICE COMPLICATION [None]
  - PNEUMONIA STAPHYLOCOCCAL [None]
